FAERS Safety Report 7451278-1 (Version None)
Quarter: 2011Q2

REPORT INFORMATION
  Report Type: 
  Country: None (occurrence: None)
  Receive Date: 20110502
  Receipt Date: 20091029
  Transmission Date: 20111010
  Serious: Yes (Hospitalization, Other)
  Sender: FDA-Public Use
  Company Number: US-BAYER-200937580NA

PATIENT
  Age: 76 Year
  Sex: Female
  Weight: 90.703 kg

DRUGS (20)
  1. GLYBURIDE [Concomitant]
     Indication: PRODUCT USED FOR UNKNOWN INDICATION
     Route: 048
  2. KEFZOL [Concomitant]
     Indication: PRODUCT USED FOR UNKNOWN INDICATION
     Dosage: 2 G, UNK
     Route: 042
  3. TRASYLOL [Suspect]
     Indication: MITRAL VALVE REPAIR
     Dosage: 1 ML, UNK, INITIAL TEST DOSE
     Route: 042
     Dates: start: 20010508, end: 20010508
  4. BACITRACIN [Concomitant]
     Indication: PRODUCT USED FOR UNKNOWN INDICATION
     Dosage: 5000 U, UNK
     Route: 042
  5. MIDAZOLAM [Concomitant]
     Indication: PRODUCT USED FOR UNKNOWN INDICATION
     Dosage: 4 MG, UNK
     Route: 042
  6. TRASYLOL [Suspect]
  7. ALLOPURINOL [Concomitant]
     Indication: PRODUCT USED FOR UNKNOWN INDICATION
     Route: 048
  8. DIGOXIN [Concomitant]
     Indication: PRODUCT USED FOR UNKNOWN INDICATION
     Route: 048
  9. NITROGLYCERIN [Concomitant]
     Indication: PRODUCT USED FOR UNKNOWN INDICATION
     Route: 042
  10. ZANTAC [Concomitant]
     Indication: PRODUCT USED FOR UNKNOWN INDICATION
     Dosage: 50 MG, UNK
     Route: 042
  11. HEPARIN [Concomitant]
     Indication: PRODUCT USED FOR UNKNOWN INDICATION
     Dosage: 2500 U, UNK
     Route: 042
  12. BENADRYL [Concomitant]
     Indication: PRODUCT USED FOR UNKNOWN INDICATION
     Dosage: 50 MG, UNK
     Route: 042
  13. VASOTEC [Concomitant]
     Indication: PRODUCT USED FOR UNKNOWN INDICATION
     Route: 048
  14. PAVULON [Concomitant]
     Indication: PRODUCT USED FOR UNKNOWN INDICATION
     Dosage: 10 MG, UNK
     Route: 042
  15. TRASYLOL [Suspect]
     Indication: TRICUSPID VALVE REPAIR
     Dosage: 200 ML LOADING DOSE
     Route: 042
     Dates: start: 20010508, end: 20010508
  16. FENTANYL [Concomitant]
     Indication: PRODUCT USED FOR UNKNOWN INDICATION
     Dosage: 5 ML, UNK
     Route: 042
  17. PROTAMINE SULFATE [Concomitant]
     Indication: PRODUCT USED FOR UNKNOWN INDICATION
     Dosage: INCREASED TO 300MG SLOWLY
     Route: 042
  18. LASIX [Concomitant]
     Indication: PRODUCT USED FOR UNKNOWN INDICATION
     Route: 048
  19. AVANDIA [Concomitant]
     Indication: PRODUCT USED FOR UNKNOWN INDICATION
     Route: 048
  20. COUMADIN [Concomitant]
     Indication: PRODUCT USED FOR UNKNOWN INDICATION
     Route: 048

REACTIONS (8)
  - FEAR [None]
  - DEPRESSION [None]
  - INJURY [None]
  - ANXIETY [None]
  - RENAL FAILURE [None]
  - ANHEDONIA [None]
  - UNEVALUABLE EVENT [None]
  - PAIN [None]
